FAERS Safety Report 4677151-X (Version None)
Quarter: 2005Q2

REPORT INFORMATION
  Report Type: 
  Country: None (occurrence: None)
  Receive Date: 20050525
  Receipt Date: 20050525
  Transmission Date: 20051028
  Serious: No
  Sender: FDA-Public Use
  Company Number: None

PATIENT
  Sex: Male
  Weight: 96.36 kg

DRUGS (3)
  1. CYCLOPHOSPHAMIDE [Suspect]
     Dosage: 1200 MG/M2
     Dates: start: 20050509
  2. VINCRISTINE [Suspect]
     Dosage: 2 MG TOTAL DOSE
  3. DAUNORUBICIN HCL [Suspect]
     Dosage: 80 MG/M2

REACTIONS (1)
  - ATRIAL FIBRILLATION [None]
